FAERS Safety Report 13257264 (Version 1)
Quarter: 2017Q1

REPORT INFORMATION
  Report Type: Spontaneous
  Country: US (occurrence: US)
  Receive Date: 20170221
  Receipt Date: 20170221
  Transmission Date: 20170428
  Serious: No
  Sender: FDA-Public Use
  Company Number: US-BAYER-2017-029188

PATIENT
  Age: 86 Year
  Sex: Female
  Weight: 61 kg

DRUGS (4)
  1. CLARITIN [Suspect]
     Active Substance: LORATADINE
     Indication: NASOPHARYNGITIS
  2. HYTROPIN [Concomitant]
     Dosage: UNK
  3. AMLODIPINE [Concomitant]
     Active Substance: AMLODIPINE BESYLATE
  4. CLARITIN [Suspect]
     Active Substance: LORATADINE
     Indication: HYPERSENSITIVITY
     Dosage: UNK
     Route: 048

REACTIONS (7)
  - Blood pressure increased [Unknown]
  - Eye pruritus [Unknown]
  - Throat tightness [Unknown]
  - Unevaluable event [Unknown]
  - Oropharyngeal discomfort [Unknown]
  - Increased upper airway secretion [Unknown]
  - Drug ineffective [Unknown]
